FAERS Safety Report 6530480-7 (Version None)
Quarter: 2010Q1

REPORT INFORMATION
  Report Type: 
  Country: None (occurrence: None)
  Receive Date: 20100106
  Receipt Date: 20100106
  Transmission Date: 20100710
  Serious: No
  Sender: FDA-Public Use
  Company Number: None

PATIENT
  Sex: Female

DRUGS (1)
  1. SYNTHROID [Suspect]
     Indication: HYPOTHYROIDISM
     Dosage: 50 MCG 1QD PO
     Route: 048
     Dates: start: 20050101, end: 20060101

REACTIONS (2)
  - DRUG INEFFECTIVE [None]
  - NAUSEA [None]
